FAERS Safety Report 7739213-X (Version None)
Quarter: 2011Q3

REPORT INFORMATION
  Report Type: 
  Country: None (occurrence: None)
  Receive Date: 20110909
  Receipt Date: 20110906
  Transmission Date: 20111222
  Serious: No
  Sender: FDA-Public Use
  Company Number: US-PFIZER INC-2011209339

PATIENT
  Sex: Male

DRUGS (17)
  1. FUROSEMIDE [Concomitant]
     Indication: FLUID RETENTION
  2. DEPO-TESTOSTERONE [Suspect]
     Dosage: 100 MG, EVERY 10 DAYS
     Route: 030
     Dates: start: 20110101
  3. ALPRAZOLAM [Concomitant]
     Indication: ANXIETY
     Dosage: 1 MG, AS NEEDED
  4. OMEPRAZOLE [Concomitant]
     Indication: GASTROOESOPHAGEAL REFLUX DISEASE
     Dosage: 40 MG, DAILY
     Route: 048
  5. VITAMIN D [Concomitant]
     Indication: VITAMIN D DEFICIENCY
     Dosage: 5000 IU, WEEKLY
  6. VERAPAMIL [Concomitant]
     Indication: BLOOD PRESSURE ABNORMAL
     Dosage: 240 MG, DAILY
  7. FUROSEMIDE [Concomitant]
     Indication: BLOOD PRESSURE ABNORMAL
     Dosage: 40 MG, 2X/DAY
  8. NOVOLIN N [Concomitant]
     Indication: DIABETES MELLITUS
     Dosage: UNK, 3X/DAY
  9. CLONIDINE [Concomitant]
     Indication: BLOOD PRESSURE ABNORMAL
     Dosage: 0.1 MG, 2X/DAY
  10. LOSARTAN POTASSIUM AND HYDROCHLOROTHIAZIDE [Concomitant]
     Indication: BLOOD PRESSURE ABNORMAL
     Dosage: 100/25 MG, DAILY
  11. DIAZEPAM [Concomitant]
     Indication: ANXIETY
     Dosage: 2 MG, 2X/DAY
  12. CITALOPRAM [Concomitant]
     Indication: DEPRESSION
     Dosage: 40 MG, DAILY
  13. LOVASTATIN [Concomitant]
     Indication: HYPERCHOLESTEROLAEMIA
     Dosage: 40 MG, DAILY
  14. NOVOLIN R [Concomitant]
     Indication: DIABETES MELLITUS
     Dosage: UNK, 3X/DAY
  15. OXYCODONE AND ACETAMINOPHEN [Concomitant]
     Indication: BACK PAIN
     Dosage: 7.5/325 MG, 3X/DAY
  16. MELOXICAM [Concomitant]
     Indication: OSTEOARTHRITIS
     Dosage: 15 MG, DAILY
  17. RISPERIDONE [Concomitant]
     Indication: PSYCHOTIC DISORDER
     Dosage: UNK, 2X/DAY
     Route: 048

REACTIONS (3)
  - HYPERHIDROSIS [None]
  - TREMOR [None]
  - POOR QUALITY DRUG ADMINISTERED [None]
